FAERS Safety Report 13797049 (Version 1)
Quarter: 2017Q3

REPORT INFORMATION
  Report Type: Spontaneous
  Country: BR (occurrence: BR)
  Receive Date: 20170727
  Receipt Date: 20170727
  Transmission Date: 20171127
  Serious: Yes (Other)
  Sender: FDA-Public Use
  Company Number: BR-AMGEN-BRASP2017110320

PATIENT
  Age: 64 Year
  Sex: Female
  Weight: 62 kg

DRUGS (6)
  1. AROMASIN [Concomitant]
     Active Substance: EXEMESTANE
     Indication: BREAST CANCER
     Dosage: UNK
     Dates: start: 201511, end: 201706
  2. PLASIL [Concomitant]
     Active Substance: METOCLOPRAMIDE HYDROCHLORIDE
     Indication: MALAISE
     Dosage: UNK
  3. ESTOMAZIL [Concomitant]
     Indication: ABDOMINAL PAIN UPPER
  4. DRAMAMINE [Concomitant]
     Active Substance: DIMENHYDRINATE
     Indication: MALAISE
     Dosage: UNK
  5. PROLIA [Suspect]
     Active Substance: DENOSUMAB
     Indication: OSTEOPOROSIS
     Dosage: ONE UNIT, Q6MO
     Route: 058
     Dates: start: 20170502
  6. CALCIUM/VITAMIN D [Concomitant]
     Active Substance: CALCIUM\VITAMIN D

REACTIONS (12)
  - Back pain [Unknown]
  - Cataract [Unknown]
  - Diarrhoea [Unknown]
  - Malaise [Unknown]
  - Pain in extremity [Recovered/Resolved]
  - Tachycardia [Unknown]
  - Paraesthesia [Unknown]
  - Tremor [Unknown]
  - Arrhythmia [Recovering/Resolving]
  - Gastric disorder [Unknown]
  - Urinary tract infection [Recovering/Resolving]
  - Nausea [Unknown]

NARRATIVE: CASE EVENT DATE: 2017
